FAERS Safety Report 20871877 (Version 1)
Quarter: 2022Q2

REPORT INFORMATION
  Report Type: Report from Study
  Country: US (occurrence: US)
  Receive Date: 20220525
  Receipt Date: 20220525
  Transmission Date: 20220720
  Serious: Yes (Death)
  Sender: FDA-Public Use
  Company Number: US-UCBSA-2022028415

PATIENT
  Age: 68 Year
  Sex: Female

DRUGS (1)
  1. ROTIGOTINE [Suspect]
     Active Substance: ROTIGOTINE
     Indication: Product used for unknown indication
     Dosage: 8MG/24HR PLACE 1 PATCH ONTO SKIN EVERY DAY
     Dates: end: 20220512

REACTIONS (1)
  - Death [Fatal]

NARRATIVE: CASE EVENT DATE: 20220512
